FAERS Safety Report 7416032-5 (Version None)
Quarter: 2011Q2

REPORT INFORMATION
  Report Type: 
  Country: None (occurrence: None)
  Receive Date: 20110414
  Receipt Date: 20110317
  Transmission Date: 20111010
  Serious: Yes (Other)
  Sender: FDA-Public Use
  Company Number: GB-BAXTER-503131

PATIENT
  Age: 65 Year
  Sex: Male
  Weight: 74 kg

DRUGS (1)
  1. FEIBA VH [Suspect]
     Indication: FACTOR VIII INHIBITION
     Route: 042
     Dates: start: 20000929, end: 20001005

REACTIONS (5)
  - DISTURBANCE IN ATTENTION [None]
  - CONFUSIONAL STATE [None]
  - APHASIA [None]
  - CEREBRAL INFARCTION [None]
  - AMNESIA [None]
